FAERS Safety Report 20085699 (Version 1)
Quarter: 2021Q4

REPORT INFORMATION
  Report Type: Spontaneous
  Country: US (occurrence: None)
  Receive Date: 20211117
  Receipt Date: 20211117
  Transmission Date: 20220303
  Serious: Yes (Hospitalization)
  Sender: FDA-Public Use
  Company Number: None

PATIENT
  Age: 58 Year
  Sex: Male

DRUGS (3)
  1. ABIRATERONE [Suspect]
     Active Substance: ABIRATERONE
     Indication: Prostate cancer
     Dosage: FREQUENCY : DAILY;?
     Route: 048
     Dates: start: 201606
  2. LISINOPRIL [Concomitant]
     Active Substance: LISINOPRIL
  3. DIAZEPAM BRILINTA [Concomitant]

REACTIONS (1)
  - Renal disorder [None]

NARRATIVE: CASE EVENT DATE: 20211001
